FAERS Safety Report 16727962 (Version 1)
Quarter: 2019Q3

REPORT INFORMATION
  Report Type: Spontaneous
  Country: GB (occurrence: GB)
  Receive Date: 20190822
  Receipt Date: 20190822
  Transmission Date: 20191005
  Serious: Yes (Hospitalization)
  Sender: FDA-Public Use
  Company Number: GB-ACCORD-152378

PATIENT
  Age: 71 Year
  Sex: Male

DRUGS (4)
  1. SERTRALINE [Suspect]
     Active Substance: SERTRALINE HYDROCHLORIDE
     Indication: PRODUCT USED FOR UNKNOWN INDICATION
     Dates: start: 20190124
  2. MICONAZOLE. [Concomitant]
     Active Substance: MICONAZOLE
     Dosage: 20 MG/G, AFTER MEALS
     Dates: start: 20190107
  3. NYSTATIN/NYSTATIN/LIPOSOME [Concomitant]
     Dosage: 100,000 UNITS/ML ORAL SUSPENSION TO BE DROPPED INTO THE MOUTH FOUR TIMES A DAY. 28 ML
     Dates: start: 20190104
  4. CHLORAMPHENICOL [Concomitant]
     Active Substance: CHLORAMPHENICOL
     Dosage: IN THE AFFECTED EYE(S)
     Dates: start: 20190117

REACTIONS (1)
  - Upper gastrointestinal haemorrhage [Recovered/Resolved]
